FAERS Safety Report 7132476-3 (Version None)
Quarter: 2010Q4

REPORT INFORMATION
  Report Type: 
  Country: None (occurrence: None)
  Receive Date: 20101202
  Receipt Date: 20101119
  Transmission Date: 20110411
  Serious: Yes (Death)
  Sender: FDA-Public Use
  Company Number: GXKR2010US13178

PATIENT
  Age: 60 Year
  Sex: Male

DRUGS (1)
  1. METFORMIN HCL [Suspect]
     Route: 065

REACTIONS (7)
  - CONTINUOUS HAEMODIAFILTRATION [None]
  - HYPERDYNAMIC LEFT VENTRICLE [None]
  - HYPERLACTACIDAEMIA [None]
  - HYPOTENSION [None]
  - OLIGURIA [None]
  - RENAL FAILURE ACUTE [None]
  - UNRESPONSIVE TO STIMULI [None]
